FAERS Safety Report 7739450-4 (Version None)
Quarter: 2011Q3

REPORT INFORMATION
  Report Type: 
  Country: None (occurrence: None)
  Receive Date: 20110909
  Receipt Date: 20110901
  Transmission Date: 20111222
  Serious: Yes (Other)
  Sender: FDA-Public Use
  Company Number: NL-AMGEN-NLDSP2011045420

PATIENT
  Age: 58 Year
  Sex: Female

DRUGS (8)
  1. ENBREL [Suspect]
     Indication: RHEUMATOID ARTHRITIS
     Dosage: 25 MG, 2X/WEEK
     Dates: start: 20060201
  2. PAROXETINE HCL [Concomitant]
     Dosage: UNK
  3. VITAMIN B12                        /00056201/ [Concomitant]
     Dosage: UNK
  4. PREDNISONE [Concomitant]
     Dosage: UNK
  5. OMEPRAZOLE [Concomitant]
     Dosage: UNK
  6. AZATHIOPRINE [Concomitant]
     Dosage: UNK
  7. AERIUS                             /01009701/ [Concomitant]
     Dosage: UNK
  8. INDOMETACIN [Concomitant]
     Dosage: UNK

REACTIONS (4)
  - IMMUNOSUPPRESSION [None]
  - PNEUMONIA [None]
  - INFECTION [None]
  - PYREXIA [None]
